FAERS Safety Report 5919255-7 (Version None)
Quarter: 2008Q4

REPORT INFORMATION
  Report Type: 
  Country: None (occurrence: None)
  Receive Date: 20081015
  Receipt Date: 20081002
  Transmission Date: 20090506
  Serious: Yes (Hospitalization, Other)
  Sender: FDA-Public Use
  Company Number: PHHY2008AT21750

PATIENT
  Sex: Female

DRUGS (4)
  1. EXJADE [Suspect]
     Indication: HAEMOSIDEROSIS
     Dosage: 500 MG/DAY AM
     Route: 048
     Dates: start: 20070523
  2. CONTRACEPTIVES NOS [Concomitant]
     Dosage: UNK
  3. PANTOPRAZOLE SODIUM [Concomitant]
     Dosage: 40 MG, QD
     Route: 048
  4. RED BLOOD CELLS [Concomitant]
     Indication: THALASSAEMIA BETA
     Dosage: UNK

REACTIONS (22)
  - ACTIVATED PARTIAL THROMBOPLASTIN TIME PROLONGED [None]
  - AGITATION [None]
  - ANTITHROMBIN III DECREASED [None]
  - BLOOD BILIRUBIN INCREASED [None]
  - BLOOD CREATINE PHOSPHOKINASE INCREASED [None]
  - BLOOD FIBRINOGEN INCREASED [None]
  - BLOOD TRIGLYCERIDES INCREASED [None]
  - BLOOD URIC ACID INCREASED [None]
  - C-REACTIVE PROTEIN INCREASED [None]
  - CAVERNOUS SINUS THROMBOSIS [None]
  - EPILEPSY [None]
  - FACIAL PARESIS [None]
  - GENERAL PHYSICAL HEALTH DETERIORATION [None]
  - HAEMOGLOBIN DECREASED [None]
  - HEADACHE [None]
  - HEMIPLEGIA [None]
  - HYPOAESTHESIA [None]
  - PARESIS CRANIAL NERVE [None]
  - PERIORBITAL HAEMATOMA [None]
  - PROTHROMBIN TIME SHORTENED [None]
  - SOMNOLENCE [None]
  - SUPERIOR SAGITTAL SINUS THROMBOSIS [None]
